APPROVED DRUG PRODUCT: MIDAZOLAM HYDROCHLORIDE
Active Ingredient: MIDAZOLAM HYDROCHLORIDE
Strength: EQ 2MG BASE/ML
Dosage Form/Route: SYRUP;ORAL
Application: A075958 | Product #001
Applicant: PAI HOLDINGS LLC DBA PHARMACEUTICAL ASSOCIATES INC AND DBA PAI PHARMA
Approved: Sep 4, 2003 | RLD: No | RS: No | Type: DISCN